FAERS Safety Report 19202875 (Version 1)
Quarter: 2021Q2

REPORT INFORMATION
  Report Type: Report from Study
  Country: CA (occurrence: CA)
  Receive Date: 20210430
  Receipt Date: 20210430
  Transmission Date: 20210717
  Serious: Yes (Other)
  Sender: FDA-Public Use
  Company Number: CA-GLAXOSMITHKLINE-CACH2021GSK024115

PATIENT
  Sex: Female

DRUGS (4)
  1. IBUPROFEN. [Suspect]
     Active Substance: IBUPROFEN
     Indication: CONGENITAL TRICUSPID VALVE STENOSIS
     Dosage: UNK
  2. INDOMETACIN [Suspect]
     Active Substance: INDOMETHACIN
     Indication: CONGENITAL TRICUSPID VALVE STENOSIS
     Dosage: UNK
  3. INDOMETACIN [Suspect]
     Active Substance: INDOMETHACIN
     Indication: CONGENITAL HEART VALVE DISORDER
  4. IBUPROFEN. [Suspect]
     Active Substance: IBUPROFEN
     Indication: CONGENITAL HEART VALVE DISORDER

REACTIONS (5)
  - Product use in unapproved indication [Unknown]
  - Premature labour [Unknown]
  - Off label use [Unknown]
  - Exposure during pregnancy [Unknown]
  - Foetal death [Unknown]
